FAERS Safety Report 6394370-5 (Version None)
Quarter: 2009Q4

REPORT INFORMATION
  Report Type: 
  Country: None (occurrence: None)
  Receive Date: 20091006
  Receipt Date: 20090925
  Transmission Date: 20100525
  Serious: Yes (Hospitalization)
  Sender: FDA-Public Use
  Company Number: GXKR2009NL10816

PATIENT
  Age: 10 Year
  Sex: Female

DRUGS (7)
  1. CLARITHROMYCIN [Suspect]
     Dosage: 6 ML, BID, ORAL
     Route: 048
     Dates: start: 20090908, end: 20090911
  2. LAMOTRIGINE [Suspect]
     Indication: EPILEPSY
     Dosage: 100 MG, QD, 75 MG
     Dates: start: 20050101
  3. LAMOTRIGINE [Suspect]
     Indication: EPILEPSY
     Dosage: 100 MG, QD, 75 MG
     Dates: start: 20090714
  4. CLONAZEPAM [Suspect]
     Dates: start: 20090831
  5. OMEPRAZOLE [Concomitant]
  6. BACLOFEN [Concomitant]
  7. SALBUTAMOL W/IPRATROPIUM (IPRATROPIUM, SALBUTAMOL) [Concomitant]

REACTIONS (3)
  - CONDITION AGGRAVATED [None]
  - DRUG INTERACTION [None]
  - EPILEPSY [None]
